FAERS Safety Report 5901852-6 (Version None)
Quarter: 2008Q3

REPORT INFORMATION
  Report Type: 
  Country: None (occurrence: None)
  Receive Date: 20080929
  Receipt Date: 20080614
  Transmission Date: 20090109
  Serious: Yes (Other)
  Sender: FDA-Public Use
  Company Number: DE-BAYER-200820531GPV

PATIENT
  Age: 30 Year
  Sex: Male

DRUGS (12)
  1. FLUDARABINE PHOSPHATE [Suspect]
     Indication: STEM CELL TRANSPLANT
  2. CYCLOPHOSPHAMIDE [Suspect]
     Indication: STEM CELL TRANSPLANT
  3. ATGAM [Suspect]
     Indication: STEM CELL TRANSPLANT
  4. ATGAM [Suspect]
     Indication: APLASTIC ANAEMIA
  5. CYCLOSPORINE [Suspect]
     Indication: APLASTIC ANAEMIA
  6. STEROIDS [Suspect]
     Indication: APLASTIC ANAEMIA
  7. FLUORCHINOLONE PROPHYLAXIS [Concomitant]
     Indication: ANTIBIOTIC PROPHYLAXIS
  8. PENTAMIDINE [Concomitant]
     Indication: ANTIFUNGAL PROPHYLAXIS
     Route: 055
  9. TRIMETHOPRIM + SULFAMETHOXAZOLE [Concomitant]
     Indication: DRUG USE FOR UNKNOWN INDICATION
  10. ACYCLOVIR [Concomitant]
     Indication: ANTIVIRAL PROPHYLAXIS
  11. HEPARIN [Concomitant]
     Indication: PROPHYLAXIS
  12. METHOTREXATE [Concomitant]
     Indication: PROPHYLAXIS AGAINST GRAFT VERSUS HOST DISEASE

REACTIONS (1)
  - CYTOMEGALOVIRUS INFECTION [None]
